FAERS Safety Report 15128856 (Version 1)
Quarter: 2018Q3

REPORT INFORMATION
  Report Type: Spontaneous
  Country: CN (occurrence: CN)
  Receive Date: 20180711
  Receipt Date: 20180711
  Transmission Date: 20181010
  Serious: Yes (Other)
  Sender: FDA-Public Use
  Company Number: CN-BAXTER-2018BAX018824

PATIENT
  Age: 66 Year
  Sex: Female
  Weight: 59.7 kg

DRUGS (3)
  1. LUDA (PIPERACILLIN SODIUM\TAZOBACTAM SODIUM) [Suspect]
     Active Substance: PIPERACILLIN SODIUM\TAZOBACTAM SODIUM
     Indication: INFECTION
     Route: 041
     Dates: start: 20180428, end: 20180428
  2. 0.9% SODIUM CHLORIDE INJECTION [Suspect]
     Active Substance: SODIUM CHLORIDE
     Indication: MEDICATION DILUTION
     Route: 041
     Dates: start: 20180428, end: 20180428
  3. LUDA (PIPERACILLIN SODIUM\TAZOBACTAM SODIUM) [Suspect]
     Active Substance: PIPERACILLIN SODIUM\TAZOBACTAM SODIUM
     Indication: BRONCHIECTASIS

REACTIONS (2)
  - Temperature intolerance [Unknown]
  - Anaphylactic shock [Recovering/Resolving]

NARRATIVE: CASE EVENT DATE: 20180428
